FAERS Safety Report 4790303-3 (Version None)
Quarter: 2005Q4

REPORT INFORMATION
  Report Type: 
  Country: None (occurrence: None)
  Receive Date: 20051005
  Receipt Date: 20050921
  Transmission Date: 20060501
  Serious: Yes (Other)
  Sender: FDA-Public Use
  Company Number: USA0509108913

PATIENT
  Sex: Female

DRUGS (1)
  1. STRATTERA [Suspect]
     Dosage: UNK
     Route: 065

REACTIONS (3)
  - CATARACT [None]
  - GLAUCOMA [None]
  - VISUAL DISTURBANCE [None]
